FAERS Safety Report 18527408 (Version 7)
Quarter: 2020Q4

REPORT INFORMATION
  Report Type: Report from Study
  Country: KR (occurrence: KR)
  Receive Date: 20201120
  Receipt Date: 20201228
  Transmission Date: 20210114
  Serious: Yes (Hospitalization)
  Sender: FDA-Public Use
  Company Number: KR-EISAI MEDICAL RESEARCH-EC-2020-084065

PATIENT
  Age: 77 Year
  Sex: Male
  Weight: 44.6 kg

DRUGS (19)
  1. PEMBROLIZUMAB. [Suspect]
     Active Substance: PEMBROLIZUMAB
     Route: 041
     Dates: start: 20200416, end: 20200416
  2. PELUBI [Concomitant]
     Dates: start: 20191010
  3. LENVATINIB [Suspect]
     Active Substance: LENVATINIB
     Indication: NON-SMALL CELL LUNG CANCER METASTATIC
     Route: 048
     Dates: start: 20190718
  4. DICAMAX [Concomitant]
     Dates: start: 201707
  5. PROSCAR [Concomitant]
     Active Substance: FINASTERIDE
     Dates: start: 20180509, end: 20200527
  6. THRUPAS [Concomitant]
     Active Substance: SILODOSIN
     Dates: start: 20190718
  7. TARGIN [Concomitant]
     Active Substance: NALOXONE HYDROCHLORIDE\OXYCODONE HYDROCHLORIDE
     Dates: start: 20191010
  8. BEECOM [Concomitant]
     Dates: start: 20191209
  9. MEGACE [Concomitant]
     Active Substance: MEGESTROL ACETATE
     Dates: start: 20200303
  10. MACPERAN [Concomitant]
     Active Substance: METOCLOPRAMIDE HYDROCHLORIDE
     Dates: start: 20200416
  11. HYTRIN [Concomitant]
     Active Substance: TERAZOSIN HYDROCHLORIDE
     Dates: start: 20200821
  12. HANMI TAMS [Concomitant]
     Dates: start: 20201106
  13. PEMBROLIZUMAB. [Suspect]
     Active Substance: PEMBROLIZUMAB
     Indication: NON-SMALL CELL LUNG CANCER METASTATIC
     Route: 041
     Dates: start: 20190718, end: 20200324
  14. PEMBROLIZUMAB. [Suspect]
     Active Substance: PEMBROLIZUMAB
     Route: 041
     Dates: start: 20190718, end: 20200324
  15. PEMBROLIZUMAB. [Suspect]
     Active Substance: PEMBROLIZUMAB
     Route: 041
     Dates: start: 20200507
  16. NEXIUM [Concomitant]
     Active Substance: ESOMEPRAZOLE MAGNESIUM
     Dates: start: 20190809, end: 20200415
  17. IRCODON [Concomitant]
     Active Substance: OXYCODONE HYDROCHLORIDE
     Dates: start: 20191010
  18. HINECOL [Concomitant]
     Active Substance: BETHANECHOL CHLORIDE
     Dates: start: 20180509
  19. NORVASC [Concomitant]
     Active Substance: AMLODIPINE BESYLATE
     Dates: start: 20190809, end: 20200527

REACTIONS (1)
  - Adrenal insufficiency [Recovering/Resolving]

NARRATIVE: CASE EVENT DATE: 20200424
